FAERS Safety Report 10718226 (Version 5)
Quarter: 2015Q3

REPORT INFORMATION
  Report Type: Spontaneous
  Country: US (occurrence: US)
  Receive Date: 20150118
  Receipt Date: 20150723
  Transmission Date: 20151125
  Serious: Yes (Congenital Anomaly, Other)
  Sender: FDA-Public Use
  Company Number: US-APOTEX-2015AP005165

PATIENT
  Age: 0 Day
  Sex: Female
  Weight: 4.5 kg

DRUGS (3)
  1. PAROXETINE HYDROCHLORIDE. [Suspect]
     Active Substance: PAROXETINE HYDROCHLORIDE
     Indication: PRODUCT USED FOR UNKNOWN INDICATION
     Dosage: 10 UNK, UNK
     Route: 064
  2. PAXIL [Suspect]
     Active Substance: PAROXETINE HYDROCHLORIDE
     Indication: ANXIETY
     Dosage: UNK
     Route: 064
     Dates: start: 2003, end: 2005
  3. PAXIL CR [Suspect]
     Active Substance: PAROXETINE HYDROCHLORIDE
     Indication: PRODUCT USED FOR UNKNOWN INDICATION
     Dosage: 12.5, 25 AND 37.5 MG INTERMITTENTLY

REACTIONS (13)
  - Developmental delay [Unknown]
  - Language disorder [Unknown]
  - Dyspraxia [Unknown]
  - Foetal exposure during pregnancy [Unknown]
  - Talipes [Unknown]
  - Foot deformity [Unknown]
  - Obsessive-compulsive disorder [Unknown]
  - Sensory disturbance [Unknown]
  - Feeding disorder [Unknown]
  - Phonological disorder [Unknown]
  - Speech disorder [Unknown]
  - Teething [Unknown]
  - Chapped lips [Unknown]

NARRATIVE: CASE EVENT DATE: 20051017
